FAERS Safety Report 7648910-6 (Version None)
Quarter: 2011Q3

REPORT INFORMATION
  Report Type: 
  Country: None (occurrence: None)
  Receive Date: 20110801
  Receipt Date: 20110726
  Transmission Date: 20111222
  Serious: Yes (Hospitalization)
  Sender: FDA-Public Use
  Company Number: IT-GENENTECH-322129

PATIENT
  Sex: Male

DRUGS (1)
  1. MABTHERA [Suspect]
     Indication: PRODUCT USED FOR UNKNOWN INDICATION
     Dosage: 500 MG, UNK
     Route: 042
     Dates: start: 20110718, end: 20110718

REACTIONS (6)
  - TACHYCARDIA [None]
  - TREMOR [None]
  - SENSATION OF HEAVINESS [None]
  - HYPOTENSION [None]
  - CYANOSIS [None]
  - PYREXIA [None]
